FAERS Safety Report 24806176 (Version 2)
Quarter: 2025Q1

REPORT INFORMATION
  Report Type: Spontaneous
  Country: US (occurrence: US)
  Receive Date: 20250103
  Receipt Date: 20250218
  Transmission Date: 20250409
  Serious: No
  Sender: EISAI
  Company Number: US-Eisai-EC-2024-181623

PATIENT
  Age: 76 Year
  Sex: Male
  Weight: 85 kg

DRUGS (16)
  1. LEQEMBI [Suspect]
     Active Substance: LECANEMAB-IRMB
     Indication: Dementia Alzheimer^s type
     Dates: start: 20240911
  2. NAPROXEN [Concomitant]
     Active Substance: NAPROXEN
  3. ACETAMINOPHEN [Concomitant]
     Active Substance: ACETAMINOPHEN
  4. FEXOFENADINE [Concomitant]
     Active Substance: FEXOFENADINE HYDROCHLORIDE
  5. GUAIFENESIN [Concomitant]
     Active Substance: GUAIFENESIN
  6. HYALURONIC ACID [Concomitant]
     Active Substance: HYALURONIC ACID
  7. IPRATROPIUM BROMIDE [Concomitant]
     Active Substance: IPRATROPIUM BROMIDE
  8. MAGNESIUM [Concomitant]
     Active Substance: MAGNESIUM
  9. MONTELUKAST [Concomitant]
     Active Substance: MONTELUKAST
  10. VITAMINS [Concomitant]
     Active Substance: VITAMINS
  11. OLOPATADINE [Concomitant]
     Active Substance: OLOPATADINE
  12. OMEGA 3 360MG-DHA-EPA-FISH OIL-VITAMIN D3 [Concomitant]
  13. PANTOPRAZOLE [Concomitant]
     Active Substance: PANTOPRAZOLE
  14. PRAVASTATIN [Concomitant]
     Active Substance: PRAVASTATIN
  15. QVAR [Concomitant]
     Active Substance: BECLOMETHASONE DIPROPIONATE
  16. VITAMIN B COMPLEX [Concomitant]
     Active Substance: CYANOCOBALAMIN\DEXPANTHENOL\NIACINAMIDE\PYRIDOXINE HYDROCHLORIDE\RIBOFLAVIN 5^-PHOSPHATE SODIUM\THIA

REACTIONS (1)
  - Superficial siderosis of central nervous system [Unknown]

NARRATIVE: CASE EVENT DATE: 20241213
